FAERS Safety Report 7027225-3 (Version None)
Quarter: 2010Q4

REPORT INFORMATION
  Report Type: 
  Country: None (occurrence: None)
  Receive Date: 20101001
  Receipt Date: 20101001
  Transmission Date: 20110411
  Serious: Yes (Hospitalization)
  Sender: FDA-Public Use
  Company Number: None

PATIENT
  Age: 852 Month
  Sex: Male
  Weight: 76.2043 kg

DRUGS (1)
  1. AZATHIOPRINE [Suspect]
     Indication: PEMPHIGUS
     Dosage: 1 TABLET 2X/DAY PO
     Route: 048
     Dates: start: 20100715, end: 20100720

REACTIONS (1)
  - PNEUMONIA [None]
